FAERS Safety Report 9068727 (Version 1)
Quarter: 2013Q1

REPORT INFORMATION
  Report Type: Spontaneous
  Country: FR (occurrence: None)
  Receive Date: 20130122
  Receipt Date: 20130122
  Transmission Date: 20140127
  Serious: Yes (Disabling)
  Sender: FDA-Public Use
  Company Number: DSA_61562_2012

PATIENT
  Age: 79 Year
  Sex: Female

DRUGS (14)
  1. FLAGYL [Suspect]
     Indication: PRODUCT USED FOR UNKNOWN INDICATION
     Route: 048
     Dates: start: 20100531, end: 20100617
  2. TARGOCID [Suspect]
     Indication: PRODUCT USED FOR UNKNOWN INDICATION
     Dosage: FREQUENCY UNSPECIFIED PARENTERAL)
     Route: 051
     Dates: start: 20100606, end: 20100617
  3. OFLOCET [Suspect]
     Indication: PRODUCT USED FOR UNKNOWN INDICATION
     Dosage: FREQUENCY UNSPECIFIED ORAL)
     Route: 048
     Dates: start: 20100522, end: 20100530
  4. CARBOPLATIN [Suspect]
     Indication: OVARIAN NEOPLASM
     Dosage: (DF, EVERY CYCLE INTRAVENOUS (NOT OTHERWISE SPECIFIED))
     Route: 042
     Dates: start: 20100402, end: 20100514
  5. CARBOPLATIN [Suspect]
     Indication: MALIGNANT PERITONEAL NEOPLASM
     Dosage: (DF, EVERY CYCLE INTRAVENOUS (NOT OTHERWISE SPECIFIED))
     Route: 042
     Dates: start: 20100402, end: 20100514
  6. CARBOPLATIN [Suspect]
     Indication: ASCITES
     Dosage: (DF, EVERY CYCLE INTRAVENOUS (NOT OTHERWISE SPECIFIED))
     Route: 042
     Dates: start: 20100402, end: 20100514
  7. PACLITAXEL (PACLITAXEL) [Suspect]
     Indication: OVARIAN NEOPLASM
     Dosage: (DF EVERY
     Dates: start: 20100402, end: 20100605
  8. PACLITAXEL (PACLITAXEL) [Suspect]
     Indication: MALIGNANT PERITONEAL NEOPLASM
     Dosage: (DF EVERY
     Dates: start: 20100402, end: 20100605
  9. PACLITAXEL (PACLITAXEL) [Suspect]
     Indication: ASCITES
     Dosage: (DF EVERY
     Dates: start: 20100402, end: 20100605
  10. AMOXICILLIN/CLAVULANIC ACID [Suspect]
     Indication: PRODUCT USED FOR UNKNOWN INDICATION
     Dosage: (DF)
     Route: 048
     Dates: start: 20100522, end: 20100605
  11. ESOMEPRAZOLE [Suspect]
     Indication: GASTROINTESTINAL HAEMORRHAGE
     Dosage: (DF)
     Route: 048
     Dates: start: 20100531, end: 20100614
  12. GENTAMICIN [Suspect]
     Indication: PRODUCT USED FOR UNKNOWN INDICATION
     Dosage: (DF)
     Dates: start: 20100606
  13. HYDROCORTISONE [Suspect]
     Indication: PRODUCT USED FOR UNKNOWN INDICATION
     Dosage: (DF)
     Route: 048
     Dates: start: 20100522, end: 20100530
  14. LASILIX /00032601/ [Concomitant]

REACTIONS (9)
  - Peripheral sensory neuropathy [None]
  - Adrenal insufficiency [None]
  - Gastrointestinal haemorrhage [None]
  - Oedema [None]
  - Staphylococcal infection [None]
  - Clostridial infection [None]
  - Fall [None]
  - Toxicity to various agents [None]
  - Motor dysfunction [None]
